FAERS Safety Report 6222298-X (Version None)
Quarter: 2009Q2

REPORT INFORMATION
  Report Type: 
  Country: None (occurrence: None)
  Receive Date: 20090611
  Receipt Date: 20090602
  Transmission Date: 20091009
  Serious: Yes (Other)
  Sender: FDA-Public Use
  Company Number: PHHY2009JP16401

PATIENT
  Age: 74 Year
  Sex: Female

DRUGS (3)
  1. LAMISIL [Suspect]
     Dosage: 125 MG/DAY
     Route: 048
     Dates: end: 20090401
  2. ANTIHYPERTENSIVE DRUGS [Concomitant]
     Indication: BLOOD PRESSURE INCREASED
     Dosage: 1 TAB/DAY
  3. ANTIHYPERTENSIVE DRUGS [Concomitant]
     Dosage: 2 TAB/DAY

REACTIONS (1)
  - BLOOD PRESSURE INCREASED [None]
